FAERS Safety Report 18139988 (Version 1)
Quarter: 2020Q3

REPORT INFORMATION
  Report Type: Spontaneous
  Country: US (occurrence: US)
  Receive Date: 20200812
  Receipt Date: 20200812
  Transmission Date: 20201103
  Serious: Yes (Other)
  Sender: FDA-Public Use
  Company Number: None

PATIENT
  Age: 76 Year
  Sex: Male
  Weight: 61.69 kg

DRUGS (1)
  1. ALFUZOSIN (ALFUZOSIN HCL 10MG CAP,SA) [Suspect]
     Active Substance: ALFUZOSIN HYDROCHLORIDE
     Indication: BENIGN PROSTATIC HYPERPLASIA
     Route: 048
     Dates: start: 20190515, end: 20190520

REACTIONS (2)
  - Fall [None]
  - Dizziness [None]

NARRATIVE: CASE EVENT DATE: 20190520
